FAERS Safety Report 4776420-2 (Version None)
Quarter: 2005Q3

REPORT INFORMATION
  Report Type: 
  Country: None (occurrence: None)
  Receive Date: 20050915
  Receipt Date: 20050908
  Transmission Date: 20060218
  Serious: Yes (Other)
  Sender: FDA-Public Use
  Company Number: 215976

PATIENT
  Age: 67 Year
  Sex: Female

DRUGS (2)
  1. MABTHERA (RITUXIMAB) CONC FOR SOLUTION FOR INFUSION [Suspect]
     Indication: MANTLE CELL LYMPHOMA
  2. PEG-INTRON [Suspect]
     Dosage: 70 + 5 UG
     Dates: start: 20050530, end: 20050530

REACTIONS (2)
  - LEUKOPENIA [None]
  - NEUTROPENIA [None]
